FAERS Safety Report 8537156-5 (Version None)
Quarter: 2012Q3

REPORT INFORMATION
  Report Type: 
  Country: None (occurrence: None)
  Receive Date: 20120725
  Receipt Date: 20120717
  Transmission Date: 20120928
  Serious: Yes (Hospitalization)
  Sender: FDA-Public Use
  Company Number: CN-BRISTOL-MYERS SQUIBB COMPANY-16776957

PATIENT
  Age: 49 Year
  Sex: Male
  Weight: 66 kg

DRUGS (1)
  1. BARACLUDE [Suspect]
     Route: 048
     Dates: start: 20110701, end: 20120717

REACTIONS (1)
  - BLOOD CREATINE PHOSPHOKINASE INCREASED [None]
